FAERS Safety Report 10597997 (Version 9)
Quarter: 2015Q4

REPORT INFORMATION
  Report Type: Spontaneous
  Country: FR (occurrence: FR)
  Receive Date: 20141121
  Receipt Date: 20151230
  Transmission Date: 20160304
  Serious: Yes (Life-Threatening, Hospitalization, Other)
  Sender: FDA-Public Use
  Company Number: FR-JNJFOC-20141006429

PATIENT
  Age: 75 Year
  Sex: Male
  Weight: 78 kg

DRUGS (7)
  1. OLYSIO [Suspect]
     Active Substance: SIMEPREVIR
     Indication: HEPATITIS C
     Route: 048
     Dates: start: 20140701, end: 20140915
  2. RIBAVIRIN. [Suspect]
     Active Substance: RIBAVIRIN
     Indication: HEPATITIS C
     Route: 048
     Dates: start: 20140701, end: 20140915
  3. INEXIUM [Concomitant]
     Active Substance: ESOMEPRAZOLE
     Indication: ULCER
     Route: 048
     Dates: start: 20140101
  4. ROCEPHIN [Suspect]
     Active Substance: CEFTRIAXONE SODIUM
     Indication: CHOLECYSTITIS
     Route: 065
     Dates: start: 20140829
  5. FLAGYL [Suspect]
     Active Substance: METRONIDAZOLE\METRONIDAZOLE HYDROCHLORIDE
     Indication: CHOLECYSTITIS
     Route: 065
     Dates: start: 20140829
  6. INEXIUM [Concomitant]
     Active Substance: ESOMEPRAZOLE
     Indication: CHRONIC GASTRITIS
     Route: 048
     Dates: start: 20140101
  7. SOVALDI [Suspect]
     Active Substance: SOFOSBUVIR
     Indication: HEPATIC CIRRHOSIS
     Route: 048
     Dates: start: 20140701, end: 20140915

REACTIONS (11)
  - Visual impairment [Unknown]
  - Hepatorenal syndrome [Recovered/Resolved]
  - Asthenia [Unknown]
  - Cholelithiasis [Unknown]
  - Prothrombin level decreased [Unknown]
  - Hyperbilirubinaemia [Recovered/Resolved]
  - Hepatic failure [Recovered/Resolved]
  - Infection [Recovered/Resolved]
  - Gastrointestinal disorder [Unknown]
  - Cholecystitis [Unknown]
  - Hepatocellular foamy cell syndrome [Unknown]

NARRATIVE: CASE EVENT DATE: 20140829
